APPROVED DRUG PRODUCT: ESMOLOL HYDROCHLORIDE
Active Ingredient: ESMOLOL HYDROCHLORIDE
Strength: 2GM/100ML
Dosage Form/Route: INJECTABLE;INJECTION
Application: A214172 | Product #002 | TE Code: AP
Applicant: HQ SPECIALTY PHARMA CORP
Approved: Dec 2, 2022 | RLD: No | RS: No | Type: RX